FAERS Safety Report 5485029-7 (Version None)
Quarter: 2007Q4

REPORT INFORMATION
  Report Type: 
  Country: None (occurrence: None)
  Receive Date: 20071015
  Receipt Date: 20071003
  Transmission Date: 20080405
  Serious: Yes (Life-Threatening, Hospitalization)
  Sender: FDA-Public Use
  Company Number: GXKR2007HR08575

PATIENT
  Age: 39 Year
  Sex: Male
  Weight: 62 kg

DRUGS (6)
  1. AMYZOL (NGX) [Suspect]
     Indication: SOMATISATION DISORDER
     Dosage: 75 MG, QD
     Route: 048
     Dates: start: 20070330, end: 20070629
  2. LEPONEX [Suspect]
     Indication: SOMATISATION DISORDER
     Dosage: 100 MG, QD
     Route: 048
     Dates: start: 20070330, end: 20070629
  3. MODITEN [Suspect]
     Indication: SOMATISATION DISORDER
     Dosage: 2.5 MG, QD
     Route: 048
     Dates: start: 20070330, end: 20070629
  4. NORMABEL [Concomitant]
     Dosage: 40 MG, UNK
     Route: 065
     Dates: start: 20070330, end: 20070629
  5. LADIOMIL [Concomitant]
     Dosage: 50 MG, UNK
     Route: 065
     Dates: start: 20070330, end: 20070629
  6. CERSON [Concomitant]
     Dosage: 5 MG, UNK
     Route: 065
     Dates: start: 20070330

REACTIONS (13)
  - ABNORMAL BEHAVIOUR [None]
  - APRAXIA [None]
  - BALANCE DISORDER [None]
  - CONFUSIONAL STATE [None]
  - DELIRIUM [None]
  - DEPRESSED LEVEL OF CONSCIOUSNESS [None]
  - DISTURBANCE IN ATTENTION [None]
  - DYSARTHRIA [None]
  - GAIT DISTURBANCE [None]
  - INCOHERENT [None]
  - POISONING [None]
  - PSYCHOTIC DISORDER [None]
  - SOMNOLENCE [None]
